FAERS Safety Report 7613820-7 (Version None)
Quarter: 2011Q3

REPORT INFORMATION
  Report Type: 
  Country: None (occurrence: None)
  Receive Date: 20110708
  Receipt Date: 20110627
  Transmission Date: 20111222
  Serious: Yes (Other)
  Sender: FDA-Public Use
  Company Number: 2011PL000095

PATIENT
  Age: 34 Year
  Sex: Male

DRUGS (1)
  1. MERCAPTOPURINE [Suspect]
     Indication: COLITIS ULCERATIVE
     Dosage: 125 MG; QD;

REACTIONS (2)
  - EPSTEIN-BARR VIRUS INFECTION [None]
  - B-CELL LYMPHOMA [None]
